FAERS Safety Report 8895431 (Version 1)
Quarter: 2012Q4

REPORT INFORMATION
  Report Type: Report from Study
  Country: DE (occurrence: DE)
  Receive Date: 20121108
  Receipt Date: 20121108
  Transmission Date: 20130627
  Serious: Yes (Life-Threatening, Hospitalization)
  Sender: FDA-Public Use
  Company Number: DE-TEVA-369054GER

PATIENT
  Age: 73 Year
  Sex: Male

DRUGS (11)
  1. CISPLATIN [Suspect]
     Indication: NON-SMALL CELL LUNG CANCER
     Dosage: 150 Milligram Daily;
     Route: 042
     Dates: start: 20120315, end: 20120315
  2. TAXOTERE [Suspect]
     Indication: NON-SMALL CELL LUNG CANCER
     Dosage: 150 Milligram Daily;
     Route: 042
     Dates: start: 20120315, end: 20120315
  3. RANITIDINE [Concomitant]
  4. DEXAMETHASONE [Concomitant]
  5. CLEMASTINE [Concomitant]
  6. CLEXANE [Concomitant]
  7. DIGITOXIN [Concomitant]
  8. METOPROLOL [Concomitant]
  9. SPIRIVA [Concomitant]
  10. OXIS [Concomitant]
  11. ASPIRIN [Concomitant]

REACTIONS (4)
  - Septic shock [Recovered/Resolved]
  - Neutropenic sepsis [Recovered/Resolved]
  - Renal failure [Recovered/Resolved]
  - Diarrhoea [Recovered/Resolved]
